FAERS Safety Report 11914719 (Version 2)
Quarter: 2016Q1

REPORT INFORMATION
  Report Type: Report from Study
  Country: FR (occurrence: FR)
  Receive Date: 20160113
  Receipt Date: 20160203
  Transmission Date: 20160526
  Serious: Yes (Other)
  Sender: FDA-Public Use
  Company Number: PHHO2013FR019644

PATIENT
  Age: 62 Year
  Sex: Male
  Weight: 76 kg

DRUGS (3)
  1. PAZOPANIB [Suspect]
     Active Substance: PAZOPANIB
     Indication: RENAL CELL CARCINOMA
     Dosage: 600 MG, QD
     Route: 048
     Dates: start: 20130309, end: 20130328
  2. PAZOPANIB [Suspect]
     Active Substance: PAZOPANIB
     Dosage: 400 MG, QD
     Route: 048
     Dates: start: 20130329, end: 20130625
  3. PAZOPANIB [Suspect]
     Active Substance: PAZOPANIB
     Dosage: 200 MG, QD
     Route: 048
     Dates: start: 20130717, end: 20130807

REACTIONS (1)
  - Renal failure [Recovered/Resolved]

NARRATIVE: CASE EVENT DATE: 20130622
